FAERS Safety Report 5581978-X (Version None)
Quarter: 2008Q1

REPORT INFORMATION
  Report Type: 
  Country: None (occurrence: None)
  Receive Date: 20080104
  Receipt Date: 20080102
  Transmission Date: 20080703
  Serious: Yes (Disabling)
  Sender: FDA-Public Use
  Company Number: D0055068A

PATIENT
  Age: 64 Year
  Sex: Male
  Weight: 88 kg

DRUGS (3)
  1. VIANI [Suspect]
     Indication: BRONCHIAL DISORDER
     Route: 055
     Dates: start: 20070301, end: 20070401
  2. ANTIBIOTIC [Concomitant]
     Route: 065
  3. CICLESONIDE [Concomitant]
     Route: 055
     Dates: start: 20070101

REACTIONS (2)
  - CATARACT [None]
  - VISUAL DISTURBANCE [None]
